FAERS Safety Report 21348504 (Version 2)
Quarter: 2022Q3

REPORT INFORMATION
  Report Type: Report from Study
  Country: US (occurrence: None)
  Receive Date: 20220919
  Receipt Date: 20220927
  Transmission Date: 20221027
  Serious: Yes (Hospitalization, Other)
  Sender: FDA-Public Use
  Company Number: US-ROCHE-3061566

PATIENT
  Age: 67 Year
  Sex: Male
  Weight: 77.3 kg

DRUGS (14)
  1. OSELTAMIVIR [Suspect]
     Active Substance: OSELTAMIVIR
     Indication: Influenza
     Route: 065
  2. BALOXAVIR MARBOXIL [Suspect]
     Active Substance: BALOXAVIR MARBOXIL
     Indication: Influenza
     Route: 065
  3. ALTEPLASE [Suspect]
     Active Substance: ALTEPLASE
     Indication: Product used for unknown indication
     Route: 050
  4. ANIDULAFUNGIN [Concomitant]
     Active Substance: ANIDULAFUNGIN
     Route: 042
  5. CARVEDILOL [Concomitant]
     Active Substance: CARVEDILOL
     Dosage: FEEDING TUBE
  6. FILGRASTIM [Concomitant]
     Active Substance: FILGRASTIM
     Route: 058
  7. INSULIN NOS [Concomitant]
     Active Substance: INSULIN NOS
     Dosage: SLIDING SCALE 7-20 UNITS
     Route: 058
  8. IPRATROPIUM [Concomitant]
     Active Substance: IPRATROPIUM
     Dosage: NEBULIZATION
  9. LEVOCARNITINE [Concomitant]
     Active Substance: LEVOCARNITINE
     Route: 042
  10. LINEZOLID [Concomitant]
     Active Substance: LINEZOLID
     Route: 042
  11. MEROPENEM [Concomitant]
     Active Substance: MEROPENEM
     Route: 042
  12. METHYLPREDNISOLONE SODIUM SUCCINATE [Concomitant]
     Active Substance: METHYLPREDNISOLONE SODIUM SUCCINATE
     Route: 042
  13. PANTOPRAZOLE [Concomitant]
     Active Substance: PANTOPRAZOLE
     Route: 042
  14. POSACONAZOLE [Concomitant]
     Active Substance: POSACONAZOLE
     Dosage: FEEDING TUBE

REACTIONS (7)
  - Mental status changes [Unknown]
  - Pyrexia [Unknown]
  - Pulmonary oedema [Unknown]
  - Infection [Unknown]
  - Embolic stroke [Not Recovered/Not Resolved]
  - Respiratory failure [Unknown]
  - Atrial fibrillation [Unknown]

NARRATIVE: CASE EVENT DATE: 20220323
